FAERS Safety Report 7087253-9 (Version None)
Quarter: 2010Q4

REPORT INFORMATION
  Report Type: 
  Country: None (occurrence: None)
  Receive Date: 20101107
  Receipt Date: 20101027
  Transmission Date: 20110411
  Serious: Yes (Hospitalization)
  Sender: FDA-Public Use
  Company Number: US-BRISTOL-MYERS SQUIBB COMPANY-13490909

PATIENT
  Age: 75 Year
  Sex: Male
  Weight: 68 kg

DRUGS (16)
  1. CETUXIMAB [Suspect]
     Indication: NON-SMALL CELL LUNG CANCER
     Dosage: FIRST INFUSION WAS ON 11MAY2006 250 MG/M2:13TH INF(4AUG06) 11MAY-25AUG2006;106DAYS
     Route: 042
     Dates: start: 20060511
  2. DOCETAXEL [Suspect]
     Indication: NON-SMALL CELL LUNG CANCER
     Dosage: INITIAL INFUSN 131MG REDUCED TO 94 MG 11MAY-04AUG06;85DAYS(131D) UNK-04AUG06;85DAYS(94MG)5TH INFUS
     Route: 042
     Dates: start: 20060511
  3. PROCARDIA XL [Concomitant]
     Route: 065
     Dates: start: 20060811
  4. NEXIUM [Concomitant]
     Route: 065
     Dates: start: 20060811
  5. ATIVAN [Concomitant]
     Route: 065
     Dates: start: 20060811
  6. SLO-MAG [Concomitant]
     Dosage: SLO MAGNESIUM
     Route: 065
     Dates: start: 20060811
  7. ROCEPHIN [Concomitant]
     Route: 065
     Dates: start: 20060811, end: 20060814
  8. METOPROLOL [Concomitant]
     Route: 065
     Dates: start: 20060811
  9. ZOLOFT [Concomitant]
     Dates: start: 20060811
  10. MEGACE [Concomitant]
     Dates: start: 20060811
  11. PROTONIX [Concomitant]
     Route: 065
  12. ZOCOR [Concomitant]
  13. COMPAZINE [Concomitant]
     Dosage: 40MG(10MG, 1 IN 6HRS)
  14. IMODIUM [Concomitant]
     Indication: DIARRHOEA
  15. TEMAZEPAM [Concomitant]
  16. DECADRON [Concomitant]
     Route: 065
     Dates: start: 20060811

REACTIONS (3)
  - FAILURE TO THRIVE [None]
  - HYPOTENSION [None]
  - OEDEMA PERIPHERAL [None]
